FAERS Safety Report 14305593 (Version 1)
Quarter: 2017Q4

REPORT INFORMATION
  Report Type: Report from Study
  Country: JP (occurrence: JP)
  Receive Date: 20171219
  Receipt Date: 20171219
  Transmission Date: 20180321
  Serious: Yes (Hospitalization)
  Sender: FDA-Public Use
  Company Number: JP-OTSUKA-03100-JPN-07-0308

PATIENT
  Age: 42 Year
  Sex: Male

DRUGS (16)
  1. ARIPIPRAZOLE. [Suspect]
     Active Substance: ARIPIPRAZOLE
     Indication: SCHIZOPHRENIA
     Dosage: 12 MG, QD
     Route: 048
     Dates: start: 20070420, end: 20070506
  2. ARIPIPRAZOLE. [Suspect]
     Active Substance: ARIPIPRAZOLE
     Dosage: 6 MG, QD
     Route: 048
     Dates: start: 20070606, end: 20070612
  3. TRIPHEDINON [Concomitant]
     Active Substance: TRIHEXYPHENIDYL HYDROCHLORIDE
     Indication: PROPHYLAXIS
     Dosage: 4 MG, UNK
     Route: 048
     Dates: end: 20070506
  4. LEVOTOMIN [Concomitant]
     Active Substance: LEVOMEPROMAZINE
     Indication: SCHIZOPHRENIA
     Dosage: 25 MG, UNK
     Route: 048
     Dates: end: 20070514
  5. U PAN [Concomitant]
     Active Substance: LORAZEPAM
     Indication: SCHIZOPHRENIA
     Dosage: 3 MG, UNK
     Route: 048
     Dates: start: 20060426, end: 20070514
  6. U PAN [Concomitant]
     Active Substance: LORAZEPAM
     Dosage: UNK
     Route: 048
     Dates: start: 20070515
  7. ARIPIPRAZOLE. [Suspect]
     Active Substance: ARIPIPRAZOLE
     Dosage: 15 MG, BID
     Route: 048
     Dates: start: 20070516, end: 20070529
  8. CREMIN [Concomitant]
     Active Substance: MOSAPRAMINE
     Dosage: UNK
     Route: 048
     Dates: start: 20070507, end: 20070512
  9. ARIPIPRAZOLE. [Suspect]
     Active Substance: ARIPIPRAZOLE
     Dosage: 18 MG, QD
     Route: 048
     Dates: start: 20070507, end: 20070515
  10. ARIPIPRAZOLE. [Suspect]
     Active Substance: ARIPIPRAZOLE
     Dosage: 18 MG, QD
     Route: 048
     Dates: start: 20070530, end: 20070605
  11. CREMIN [Concomitant]
     Active Substance: MOSAPRAMINE
     Indication: SCHIZOPHRENIA
     Dosage: UNK
     Route: 048
     Dates: end: 20070506
  12. TRIPHEDINON [Concomitant]
     Active Substance: TRIHEXYPHENIDYL HYDROCHLORIDE
     Dosage: 2 MG, UNK
     Route: 048
     Dates: start: 20070507, end: 20070514
  13. LEVOTOMIN [Concomitant]
     Active Substance: LEVOMEPROMAZINE
     Dosage: 50 MG, UNK
     Route: 048
     Dates: start: 20070515, end: 20070529
  14. ZYPREXA [Concomitant]
     Active Substance: OLANZAPINE
     Indication: SCHIZOPHRENIA
     Dosage: 20 MG, UNK
     Route: 048
     Dates: start: 20070530, end: 20070603
  15. ZYPREXA [Concomitant]
     Active Substance: OLANZAPINE
     Dosage: UNK
     Route: 048
     Dates: start: 20070604
  16. LEVOTOMIN [Concomitant]
     Active Substance: LEVOMEPROMAZINE
     Dosage: 100 MG, UNK
     Route: 048
     Dates: start: 20070530

REACTIONS (3)
  - Paranoia [Recovering/Resolving]
  - Hallucination [Recovering/Resolving]
  - Insomnia [Recovered/Resolved]

NARRATIVE: CASE EVENT DATE: 20070422
